FAERS Safety Report 8037144-1 (Version None)
Quarter: 2012Q1

REPORT INFORMATION
  Report Type: 
  Country: None (occurrence: None)
  Receive Date: 20120111
  Receipt Date: 20120109
  Transmission Date: 20120608
  Serious: Yes (Disabling, Other)
  Sender: FDA-Public Use
  Company Number: US-PFIZER INC-2011143774

PATIENT
  Sex: Female

DRUGS (7)
  1. LEXAPRO [Concomitant]
     Dosage: UNK
     Dates: start: 19980101, end: 20100101
  2. IBUPROFEN [Concomitant]
     Dosage: UNK
     Dates: start: 20060101
  3. FIORINAL [Concomitant]
     Dosage: UNK
     Dates: start: 19960101, end: 20110101
  4. LISINOPRIL [Concomitant]
     Dosage: UNK
     Dates: start: 19980101, end: 20110101
  5. ADDERALL 5 [Concomitant]
     Dosage: UNK
     Dates: start: 20010101, end: 20110101
  6. CELEXA [Concomitant]
     Dosage: UNK
     Dates: start: 20010101, end: 20110101
  7. CHANTIX [Suspect]
     Indication: SMOKING CESSATION THERAPY
     Dosage: UNK
     Route: 048
     Dates: start: 20070901, end: 20100101

REACTIONS (8)
  - INTENTIONAL OVERDOSE [None]
  - DEPRESSION [None]
  - AGGRESSION [None]
  - MOOD SWINGS [None]
  - SUICIDE ATTEMPT [None]
  - ABNORMAL BEHAVIOUR [None]
  - MENTAL DISORDER [None]
  - ANXIETY [None]
